FAERS Safety Report 4758984-8 (Version None)
Quarter: 2005Q3

REPORT INFORMATION
  Report Type: 
  Country: None (occurrence: None)
  Receive Date: 20050901
  Receipt Date: 20050819
  Transmission Date: 20060218
  Serious: Yes (Death)
  Sender: FDA-Public Use
  Company Number: PHFR2005GB02866

PATIENT
  Age: 69 Year
  Sex: 0

DRUGS (7)
  1. LESCOL [Suspect]
     Indication: HYPERCHOLESTEROLAEMIA
     Dosage: 20MG/DAY
     Route: 065
  2. CO-TRIMOXAZOLE [Concomitant]
     Route: 065
  3. OMEPRAZOLE [Concomitant]
     Dosage: 20MG/DAY
     Route: 065
  4. SANDIMMUNE [Concomitant]
     Dosage: 100MG/DAY
     Route: 065
  5. QUININE SULPHATE [Concomitant]
     Route: 065
  6. AZATHIOPRINE [Concomitant]
     Dosage: 50MG/DAY
     Route: 065
  7. COMBIVENT [Concomitant]
     Route: 065

REACTIONS (1)
  - DEATH [None]
